FAERS Safety Report 7484422-0 (Version None)
Quarter: 2011Q2

REPORT INFORMATION
  Report Type: 
  Country: None (occurrence: None)
  Receive Date: 20110517
  Receipt Date: 20110509
  Transmission Date: 20111010
  Serious: Yes (Other)
  Sender: FDA-Public Use
  Company Number: US-PURDUE-USA-2011-0067930

PATIENT
  Age: 55 Year
  Sex: Female

DRUGS (1)
  1. OXYCONTIN [Suspect]
     Indication: PAIN
     Dosage: 160 MG, BID
     Dates: start: 20110301, end: 20110414

REACTIONS (5)
  - BLOOD PRESSURE INCREASED [None]
  - MUSCLE SPASMS [None]
  - MOVEMENT DISORDER [None]
  - UNEVALUABLE EVENT [None]
  - JOINT STIFFNESS [None]
